FAERS Safety Report 17300971 (Version 6)
Quarter: 2024Q4

REPORT INFORMATION
  Report Type: Spontaneous
  Country: US (occurrence: US)
  Receive Date: 20200122
  Receipt Date: 20241125
  Transmission Date: 20250115
  Serious: Yes (Other)
  Sender: PFIZER
  Company Number: US-PFIZER INC-2020028713

PATIENT
  Age: 63 Year
  Sex: Female

DRUGS (3)
  1. XELJANZ [Suspect]
     Active Substance: TOFACITINIB CITRATE
     Dosage: 5 MG
  2. LEVOTHYROXINE [Concomitant]
     Active Substance: LEVOTHYROXINE
     Dosage: UNK
  3. MOUNJARO [Concomitant]
     Active Substance: TIRZEPATIDE
     Dosage: UNK

REACTIONS (12)
  - Near death experience [Unknown]
  - Musculoskeletal disorder [Unknown]
  - Fall [Unknown]
  - Injury [Unknown]
  - Arthralgia [Unknown]
  - Motor dysfunction [Unknown]
  - Feeling abnormal [Unknown]
  - Hordeolum [Unknown]
  - Thyroid disorder [Unknown]
  - Sinusitis [Unknown]
  - Condition aggravated [Unknown]
  - Weight decreased [Unknown]
